FAERS Safety Report 12781972 (Version 4)
Quarter: 2016Q4

REPORT INFORMATION
  Report Type: Report from Study
  Country: JP (occurrence: JP)
  Receive Date: 20160927
  Receipt Date: 20161022
  Transmission Date: 20170207
  Serious: Yes (Other)
  Sender: FDA-Public Use
  Company Number: JP-ROCHE-1832871

PATIENT
  Age: 63 Year
  Sex: Female
  Weight: 49.35 kg

DRUGS (4)
  1. CARBOPLATIN. [Suspect]
     Active Substance: CARBOPLATIN
     Indication: NON-SMALL CELL LUNG CANCER STAGE IV
     Dosage: AREA UNDER CONCENTRATION-TIME CURVE (AUC=6)?THE MOST RECENT DOSE OF CARBOPLATIN WAS ADMINISTERED ON
     Route: 042
     Dates: start: 20160906
  2. ATEZOLIZUMAB [Suspect]
     Active Substance: ATEZOLIZUMAB
     Indication: NON-SMALL CELL LUNG CANCER STAGE IV
     Dosage: THE MOST RECENT DOSE OF ATEZOLIZUMAB, 1200 MG, WAS ADMINISTERED ON 06/SEP/2016.
     Route: 042
     Dates: start: 20160906
  3. PACLITAXEL. [Suspect]
     Active Substance: PACLITAXEL
     Indication: NON-SMALL CELL LUNG CANCER STAGE IV
     Dosage: THE MOST RECENT DOSE OF PACLITAXEL, 297 MG, WAS ADMINISTERED ON 06/SEP/2016.
     Route: 042
     Dates: start: 20160906
  4. ATEZOLIZUMAB [Suspect]
     Active Substance: ATEZOLIZUMAB
     Indication: NON-SMALL CELL LUNG CANCER STAGE IV

REACTIONS (1)
  - Erythema multiforme [Recovered/Resolved]

NARRATIVE: CASE EVENT DATE: 20160916
